FAERS Safety Report 9052767 (Version 2)
Quarter: 2013Q1

REPORT INFORMATION
  Report Type: Spontaneous
  Country: JP (occurrence: JP)
  Receive Date: 20130207
  Receipt Date: 20130214
  Transmission Date: 20140127
  Serious: Yes (Other)
  Sender: FDA-Public Use
  Company Number: JP-ROCHE-1188239

PATIENT
  Age: 4 Year
  Sex: Female
  Weight: 17 kg

DRUGS (5)
  1. TAMIFLU [Suspect]
     Indication: INFLUENZA
     Route: 048
     Dates: start: 20130122
  2. AMBROXOL HYDROCHLORIDE [Concomitant]
     Dosage: DOSAGE IS UNCERTAIN.
     Route: 048
  3. ASVERIN (TIPEPIDINE HIBENZATE) [Concomitant]
     Dosage: DOSAGE IS UNCERTAIN.
     Route: 048
  4. ZESULAN [Concomitant]
     Dosage: DOSAGE IS UNCERTAIN.
     Route: 048
  5. CALONAL [Concomitant]
     Dosage: TAKEN AS NEEDED, DOSAGE IS UNCERTAIN.
     Route: 048

REACTIONS (2)
  - Abnormal behaviour [Recovered/Resolved]
  - Agitation [Recovered/Resolved]
